FAERS Safety Report 14409302 (Version 1)
Quarter: 2018Q1

REPORT INFORMATION
  Report Type: Spontaneous
  Country: AU (occurrence: AU)
  Receive Date: 20180119
  Receipt Date: 20180119
  Transmission Date: 20180509
  Serious: Yes (Other)
  Sender: FDA-Public Use
  Company Number: AU-CONCORDIA PHARMACEUTICALS INC.-GSH201801-000245

PATIENT
  Age: 42 Year
  Sex: Female

DRUGS (3)
  1. TEMAZEPAM. [Concomitant]
     Active Substance: TEMAZEPAM
  2. PARNATE [Suspect]
     Active Substance: TRANYLCYPROMINE SULFATE
  3. CIRCADIN [Concomitant]
     Active Substance: MELATONIN

REACTIONS (2)
  - Tachycardia [Unknown]
  - Gastric ulcer [Unknown]
